APPROVED DRUG PRODUCT: DILAUDID-HP
Active Ingredient: HYDROMORPHONE HYDROCHLORIDE
Strength: 10MG/ML
Dosage Form/Route: INJECTABLE;INJECTION
Application: N019034 | Product #001
Applicant: FRESENIUS KABI USA LLC
Approved: Jan 11, 1984 | RLD: Yes | RS: No | Type: DISCN

PATENTS:
Patent 9731082 | Expires: Apr 23, 2032
Patent 9248229 | Expires: Mar 12, 2034